FAERS Safety Report 19663068 (Version 2)
Quarter: 2021Q3

REPORT INFORMATION
  Report Type: Report from Study
  Country: GB (occurrence: GB)
  Receive Date: 20210805
  Receipt Date: 20210915
  Transmission Date: 20211014
  Serious: Yes (Disabling)
  Sender: FDA-Public Use
  Company Number: GB-KYOWAKIRIN-2021BKK013587

PATIENT

DRUGS (3)
  1. CRYSVITA [Suspect]
     Active Substance: BUROSUMAB-TWZA
     Indication: HEREDITARY HYPOPHOSPHATAEMIC RICKETS
     Dosage: 60 MG, EVERY 28 DAYS
     Route: 058
     Dates: start: 202106
  2. CRYSVITA [Suspect]
     Active Substance: BUROSUMAB-TWZA
     Indication: HEREDITARY HYPOPHOSPHATAEMIC RICKETS
     Dosage: STRENGTH 30 AND 10 MG/ML COMBINE TO ACHIEVE 70 MG, EVERY 28 DAYS
     Route: 058
     Dates: start: 20210527, end: 20210527
  3. CRYSVITA [Suspect]
     Active Substance: BUROSUMAB-TWZA
     Indication: HEREDITARY HYPOPHOSPHATAEMIC RICKETS
     Dosage: STRENGTH 30 AND 10 MG/ML COMBINE TO ACHIEVE 70 MG, EVERY 28 DAYS
     Route: 058
     Dates: start: 20210527, end: 20210527

REACTIONS (4)
  - Restless legs syndrome [Recovering/Resolving]
  - Back pain [Recovered/Resolved]
  - Muscle spasms [Recovering/Resolving]
  - Radiculopathy [Recovering/Resolving]

NARRATIVE: CASE EVENT DATE: 202106
